FAERS Safety Report 12494571 (Version 2)
Quarter: 2016Q3

REPORT INFORMATION
  Report Type: Spontaneous
  Country: US (occurrence: US)
  Receive Date: 20160624
  Receipt Date: 20160722
  Transmission Date: 20161109
  Serious: No
  Sender: FDA-Public Use
  Company Number: US-ASTRAZENECA-2016SE53492

PATIENT
  Sex: Female

DRUGS (2)
  1. PULMICORT FLEXHALER [Suspect]
     Active Substance: BUDESONIDE
     Dosage: 180 MCG 225 MG, ONE PUFF TWICE PER DAY
     Route: 055
     Dates: end: 201512
  2. PULMICORT FLEXHALER [Suspect]
     Active Substance: BUDESONIDE
     Dosage: 180, 180 MCG 225 MG, ONE PUFF DAILY AT NIGHT
     Route: 055
     Dates: end: 201512

REACTIONS (3)
  - Intentional product misuse [Unknown]
  - Candida infection [Unknown]
  - Product quality issue [Unknown]
